FAERS Safety Report 13299022 (Version 1)
Quarter: 2017Q1

REPORT INFORMATION
  Report Type: Spontaneous
  Country: FR (occurrence: FR)
  Receive Date: 20170306
  Receipt Date: 20170306
  Transmission Date: 20170428
  Serious: Yes (Other)
  Sender: FDA-Public Use
  Company Number: FR-BAUSCH-BL-2017-005334

PATIENT
  Age: 34 Year
  Sex: Male

DRUGS (3)
  1. AMPHOTERICIN B. [Concomitant]
     Active Substance: AMPHOTERICIN B
     Indication: CRYPTOCOCCOSIS
  2. 5-FLUOROCYTOSINE [Suspect]
     Active Substance: FLUCYTOSINE
     Indication: CRYPTOCOCCOSIS
     Route: 042
  3. 5-FLUOROCYTOSINE [Suspect]
     Active Substance: FLUCYTOSINE
     Route: 042

REACTIONS (3)
  - Electrophoresis abnormal [Unknown]
  - Toxicity to various agents [Recovering/Resolving]
  - Overdose [Unknown]
